FAERS Safety Report 5393281-1 (Version None)
Quarter: 2007Q3

REPORT INFORMATION
  Report Type: 
  Country: None (occurrence: None)
  Receive Date: 20070723
  Receipt Date: 20070717
  Transmission Date: 20080115
  Serious: Yes (Hospitalization)
  Sender: FDA-Public Use
  Company Number: PHBS2007JP12084

PATIENT
  Age: 70 Year
  Sex: Female

DRUGS (2)
  1. DRUG THERAPY NOS [Concomitant]
  2. LUDIOMIL [Suspect]
     Route: 048

REACTIONS (2)
  - EOSINOPHILIC PNEUMONIA [None]
  - INTERSTITIAL LUNG DISEASE [None]
